FAERS Safety Report 6051217-4 (Version None)
Quarter: 2009Q1

REPORT INFORMATION
  Report Type: 
  Country: None (occurrence: None)
  Receive Date: 20090121
  Receipt Date: 20090121
  Transmission Date: 20090719
  Serious: No
  Sender: FDA-Public Use
  Company Number: None

PATIENT
  Age: 51 Year
  Sex: Female
  Weight: 58.9 kg

DRUGS (1)
  1. MORPHINE [Suspect]
     Dates: start: 20081116

REACTIONS (3)
  - DIZZINESS [None]
  - NAUSEA [None]
  - URTICARIA [None]
